FAERS Safety Report 23127968 (Version 4)
Quarter: 2025Q2

REPORT INFORMATION
  Report Type: Spontaneous
  Country: JP (occurrence: JP)
  Receive Date: 20231031
  Receipt Date: 20250408
  Transmission Date: 20250717
  Serious: Yes (Death, Hospitalization, Other)
  Sender: BRISTOL MYERS SQUIBB
  Company Number: JP-ONO-2023JP026530

PATIENT
  Age: 66 Year
  Sex: Male
  Weight: 51.2 kg

DRUGS (11)
  1. OPDIVO [Suspect]
     Active Substance: NIVOLUMAB
     Indication: Gastric cancer
     Route: 041
     Dates: start: 20210401, end: 20210428
  2. MAGNESIUM OXIDE [Concomitant]
     Active Substance: MAGNESIUM OXIDE
     Indication: Product used for unknown indication
     Route: 048
     Dates: start: 20200811
  3. MOSAPRIDE CITRATE [Concomitant]
     Active Substance: MOSAPRIDE CITRATE
     Indication: Product used for unknown indication
     Route: 048
     Dates: start: 20201008
  4. LOXOPROFEN SODIUM DIHYDRATE [Concomitant]
     Active Substance: LOXOPROFEN SODIUM DIHYDRATE
     Indication: Product used for unknown indication
     Route: 048
     Dates: start: 20200811
  5. HYDROMORPHONE HYDROCHLORIDE [Concomitant]
     Active Substance: HYDROMORPHONE HYDROCHLORIDE
     Indication: Product used for unknown indication
     Dosage: 4 MG, EVERYDAY
     Route: 048
     Dates: start: 20210318, end: 20210505
  6. HYDROMORPHONE HYDROCHLORIDE [Concomitant]
     Active Substance: HYDROMORPHONE HYDROCHLORIDE
     Indication: Product used for unknown indication
     Route: 048
     Dates: start: 20210318, end: 20210505
  7. SODIUM FERROUS CITRATE [Concomitant]
     Active Substance: SODIUM FERROUS CITRATE
     Indication: Product used for unknown indication
     Dosage: 100 MG, EVERYDAY
     Route: 048
     Dates: start: 20200820
  8. VONOPRAZAN FUMARATE [Concomitant]
     Active Substance: VONOPRAZAN FUMARATE
     Indication: Product used for unknown indication
     Dosage: 10 MG, EVERYDAY
     Route: 048
     Dates: start: 20200820
  9. AZOSEMIDE [Concomitant]
     Active Substance: AZOSEMIDE
     Indication: Product used for unknown indication
     Dosage: 60 MG, EVERYDAY
     Route: 048
     Dates: start: 20210311
  10. SPIRONOLACTONE [Concomitant]
     Active Substance: SPIRONOLACTONE
     Indication: Product used for unknown indication
     Dosage: 50 MG, EVERYDAY
     Route: 048
     Dates: start: 20210318
  11. CARBOHYDRATES\FATTY ACIDS\MINERALS\PROTEIN\VITAMINS [Concomitant]
     Active Substance: CARBOHYDRATES\FATTY ACIDS\MINERALS\PROTEIN\VITAMINS
     Indication: Product used for unknown indication
     Dosage: 250 ML, EVERYDAY
     Route: 048
     Dates: start: 20201029

REACTIONS (7)
  - Immune-mediated myasthenia gravis [Fatal]
  - Hypoalbuminaemia [Unknown]
  - Aspartate aminotransferase increased [Unknown]
  - Alanine aminotransferase increased [Unknown]
  - Hypoaesthesia [Unknown]
  - Myocarditis [Fatal]
  - Malignant neoplasm progression [Unknown]

NARRATIVE: CASE EVENT DATE: 20210415
